FAERS Safety Report 6937622-X (Version None)
Quarter: 2010Q3

REPORT INFORMATION
  Report Type: 
  Country: None (occurrence: None)
  Receive Date: 20100823
  Receipt Date: 20100823
  Transmission Date: 20110219
  Serious: Yes (Hospitalization)
  Sender: FDA-Public Use
  Company Number: None

PATIENT
  Sex: Female
  Weight: 77.1115 kg

DRUGS (2)
  1. CEFTRIAXONE [Suspect]
     Indication: ARTHRITIS BACTERIAL
     Dosage: 2GRAM DAILY IV
     Route: 042
     Dates: start: 20100804, end: 20100818
  2. VANCOMYCIN [Suspect]
     Dosage: 1GRAM EVERY 12 HOURS IV
     Route: 042
     Dates: start: 20100804, end: 20100818

REACTIONS (2)
  - PYREXIA [None]
  - RASH GENERALISED [None]
